FAERS Safety Report 14994735 (Version 2)
Quarter: 2018Q3

REPORT INFORMATION
  Report Type: Report from Study
  Country: DE (occurrence: DE)
  Receive Date: 20180611
  Receipt Date: 20180705
  Transmission Date: 20181010
  Serious: Yes (Hospitalization, Other)
  Sender: FDA-Public Use
  Company Number: PHHY2018DE007746

PATIENT
  Sex: Male
  Weight: 78 kg

DRUGS (11)
  1. REVOLADE [Suspect]
     Active Substance: ELTROMBOPAG
     Indication: IMMUNE THROMBOCYTOPENIC PURPURA
     Dosage: 50 MG, QD
     Route: 048
     Dates: start: 20180328, end: 20180423
  2. IDEOS [Concomitant]
     Active Substance: CALCIUM CARBONATE\CHOLECALCIFEROL
     Indication: VIRAL CARDIOMYOPATHY
     Dosage: UNK UNK, BID (1?0?1)
     Route: 048
  3. ASPIRIN. [Concomitant]
     Active Substance: ASPIRIN
     Indication: VIRAL CARDIOMYOPATHY
     Dosage: 100 MG, QD (0?1?0)
     Route: 048
     Dates: start: 201801
  4. EPLERENONE. [Concomitant]
     Active Substance: EPLERENONE
     Indication: VIRAL CARDIOMYOPATHY
     Dosage: 25 MG, QD (1?0?0)
     Route: 048
     Dates: start: 201801
  5. PREDNISOLONE. [Concomitant]
     Active Substance: PREDNISOLONE
     Indication: VIRAL CARDIOMYOPATHY
     Dosage: 100 MG, QD (1?0?0)
     Route: 048
     Dates: start: 20180228
  6. BISOPROLOL [Concomitant]
     Active Substance: BISOPROLOL
     Indication: VIRAL CARDIOMYOPATHY
     Dosage: 5 MG, BID (1?0?1)
     Route: 048
     Dates: start: 201801
  7. REVOLADE [Suspect]
     Active Substance: ELTROMBOPAG
     Dosage: 75 MG, QD
     Route: 048
     Dates: start: 20180625
  8. TORSEMIDE. [Concomitant]
     Active Substance: TORSEMIDE
     Indication: VIRAL CARDIOMYOPATHY
     Dosage: 10 MG, QD (1?0?0)
     Route: 048
     Dates: start: 201801
  9. REVOLADE [Suspect]
     Active Substance: ELTROMBOPAG
     Dosage: 50 MG, QD
     Route: 048
     Dates: start: 20180516, end: 20180624
  10. REVOLADE [Suspect]
     Active Substance: ELTROMBOPAG
     Dosage: 75 MG, QD
     Route: 048
     Dates: start: 20180424, end: 20180515
  11. ENTRESTO [Concomitant]
     Active Substance: SACUBITRIL\VALSARTAN
     Indication: VIRAL CARDIOMYOPATHY
     Dosage: UNK MG, BID ( (2?0?2))
     Route: 048
     Dates: start: 201801

REACTIONS (5)
  - Thrombocytopenia [Recovered/Resolved]
  - Proteinuria [Unknown]
  - Nausea [Recovering/Resolving]
  - Blood creatinine increased [Not Recovered/Not Resolved]
  - Fatigue [Unknown]

NARRATIVE: CASE EVENT DATE: 20180424
